FAERS Safety Report 9295298 (Version 1)
Quarter: 2013Q2

REPORT INFORMATION
  Report Type: Spontaneous
  Country: US (occurrence: None)
  Receive Date: 20130514
  Receipt Date: 20130514
  Transmission Date: 20140414
  Serious: Yes (Other)
  Sender: FDA-Public Use
  Company Number: USA/USA/13/0029505

PATIENT
  Age: 90 Year
  Sex: Female

DRUGS (1)
  1. RISPERIDONE (RISPERIDONE) [Suspect]
     Indication: DEPRESSION

REACTIONS (2)
  - Dyskinesia [None]
  - Withdrawal syndrome [None]
